FAERS Safety Report 9490148 (Version 2)
Quarter: 2013Q3

REPORT INFORMATION
  Report Type: Spontaneous
  Country: US (occurrence: US)
  Receive Date: 20130830
  Receipt Date: 20130911
  Transmission Date: 20140515
  Serious: Yes (Hospitalization, Other)
  Sender: FDA-Public Use
  Company Number: US-AMGEN-USASP2013059904

PATIENT
  Age: 82 Year
  Sex: Female
  Weight: 51.06 kg

DRUGS (16)
  1. PROLIA [Suspect]
     Indication: OSTEOPOROSIS POSTMENOPAUSAL
     Dosage: 60 MG, Q6MO
     Route: 058
     Dates: start: 20110819
  2. LEVOTHYROXINE [Concomitant]
     Dosage: 0.088 MG, QD
     Route: 048
  3. BIOTIN [Concomitant]
     Dosage: 1000 MUG, QD
     Route: 048
  4. ENOXAPARIN SODIUM [Concomitant]
     Dosage: 40 MG/0.4 ML, QD
     Route: 058
  5. METAMUCIL                          /00029101/ [Concomitant]
     Dosage: 4 GM/DOSE, 1 TEA SPOON, QD
     Route: 048
  6. HYDROCODONE BITARTRATE AND ACETAMINOPHEN [Concomitant]
     Dosage: 325/5 MG, EVERY 4 HRS, AS NECESSARY
     Route: 048
  7. ACETAMINOPHEN [Concomitant]
     Dosage: 325 MG, EVERY 4 HRS, AS NECESSARY
     Route: 048
  8. CITRACAL + D                       /01438101/ [Concomitant]
     Dosage: 315 MG/ 200 IU, BID
     Route: 048
  9. FLUTICASONE [Concomitant]
     Dosage: 1 EACH NASAL, QD
     Route: 045
  10. KEPPRA [Concomitant]
     Dosage: 500 MG, BID
     Route: 048
  11. METOPROLOL [Concomitant]
     Dosage: 25 MG, BID
     Route: 048
  12. MOBIC [Concomitant]
     Dosage: 7.5 MG, BID
     Route: 048
  13. MULTIVITAMINS, PLAIN [Concomitant]
     Dosage: 1 EACH, QD
     Route: 048
  14. VITAMIN D                          /00107901/ [Concomitant]
     Dosage: 1000 IU, BID
     Route: 048
  15. ZANTAC [Concomitant]
     Dosage: 150 MG, AT BED TIME
     Route: 048
  16. ZOCOR [Concomitant]
     Dosage: UNK UNK, QD
     Route: 048

REACTIONS (9)
  - Hip fracture [Unknown]
  - Fall [Unknown]
  - Femur fracture [Unknown]
  - Nausea [Unknown]
  - Oedema peripheral [Unknown]
  - Foot deformity [Unknown]
  - Blister [Unknown]
  - Tenderness [Unknown]
  - Pyrexia [Unknown]
